FAERS Safety Report 7793884-0 (Version None)
Quarter: 2011Q4

REPORT INFORMATION
  Report Type: 
  Country: None (occurrence: None)
  Receive Date: 20111004
  Receipt Date: 20110926
  Transmission Date: 20120403
  Serious: No
  Sender: FDA-Public Use
  Company Number: US-BIOGENIDEC-2010BI033764

PATIENT
  Age: 22 Year
  Sex: Male

DRUGS (1)
  1. TYSABRI [Suspect]
     Indication: MULTIPLE SCLEROSIS
     Route: 042
     Dates: start: 20100921

REACTIONS (6)
  - MULTIPLE SCLEROSIS [None]
  - SOMNOLENCE [None]
  - ASTHENIA [None]
  - SNEEZING [None]
  - MOOD ALTERED [None]
  - FATIGUE [None]
